FAERS Safety Report 12162580 (Version 1)
Quarter: 2016Q1

REPORT INFORMATION
  Report Type: Spontaneous
  Country: US (occurrence: US)
  Receive Date: 20160309
  Receipt Date: 20160309
  Transmission Date: 20160526
  Serious: No
  Sender: FDA-Public Use
  Company Number: US-PFIZER INC-2016115404

PATIENT
  Age: 66 Year
  Sex: Female
  Weight: 68 kg

DRUGS (1)
  1. PREMARIN [Suspect]
     Active Substance: ESTROGENS, CONJUGATED
     Indication: VULVOVAGINAL DRYNESS
     Dosage: UNK, 2X/DAY
     Dates: start: 201511, end: 201601

REACTIONS (3)
  - Vulvovaginal pruritus [Recovered/Resolved]
  - Product use issue [Unknown]
  - Vulvovaginal mycotic infection [Recovered/Resolved]
